FAERS Safety Report 16382650 (Version 1)
Quarter: 2019Q2

REPORT INFORMATION
  Report Type: Spontaneous
  Country: ES (occurrence: ES)
  Receive Date: 20190603
  Receipt Date: 20190603
  Transmission Date: 20190711
  Serious: Yes (Other)
  Sender: FDA-Public Use
  Company Number: ES-TEVA-2019-ES-1057242

PATIENT
  Age: 76 Year
  Sex: Female
  Weight: 74 kg

DRUGS (1)
  1. PACLITAXEL (2698A) [Suspect]
     Active Substance: PACLITAXEL
     Indication: ADJUVANT THERAPY
     Dosage: SINGLE INFUSION
     Route: 041
     Dates: start: 20190422, end: 20190422

REACTIONS (2)
  - Infusion related reaction [Recovered/Resolved]
  - Loss of consciousness [Recovered/Resolved]

NARRATIVE: CASE EVENT DATE: 20190422
